FAERS Safety Report 10624689 (Version 2)
Quarter: 2014Q4

REPORT INFORMATION
  Report Type: Spontaneous
  Country: FI (occurrence: FI)
  Receive Date: 20141204
  Receipt Date: 20141204
  Transmission Date: 20150529
  Serious: Yes (Hospitalization, Other)
  Sender: FDA-Public Use
  Company Number: FI-009507513-1411FIN002332

PATIENT
  Age: 21 Year
  Sex: Female

DRUGS (1)
  1. NUVARING [Suspect]
     Active Substance: ETHINYL ESTRADIOL\ETONOGESTREL
     Dosage: UNK
     Route: 067
     Dates: start: 2009

REACTIONS (4)
  - Abortion induced [Unknown]
  - Unintended pregnancy [Recovered/Resolved]
  - Induced abortion haemorrhage [Unknown]
  - Abdominal pain lower [Unknown]

NARRATIVE: CASE EVENT DATE: 20140908
